FAERS Safety Report 5883274-X (Version None)
Quarter: 2008Q3

REPORT INFORMATION
  Report Type: 
  Country: None (occurrence: None)
  Receive Date: 20080910
  Receipt Date: 20080903
  Transmission Date: 20090109
  Serious: Yes (Other)
  Sender: FDA-Public Use
  Company Number: 20111

PATIENT
  Age: 69 Year
  Sex: Female
  Weight: 71.2 kg

DRUGS (6)
  1. CARBOPLATIN [Suspect]
     Indication: OVARIAN CANCER
     Dosage: 330 MG MONTHLY IV
     Route: 042
     Dates: start: 20020228, end: 20020613
  2. CARBOPLATIN [Suspect]
     Indication: OVARIAN CANCER
     Dosage: 330 MG MONTHLY IV
     Route: 042
     Dates: start: 20080717, end: 20080828
  3. BENADRYL [Concomitant]
  4. ATIVAN [Concomitant]
  5. ZOFRAN [Concomitant]
  6. DECADRON SRC [Concomitant]

REACTIONS (11)
  - CHEST DISCOMFORT [None]
  - CHEST PAIN [None]
  - CYANOSIS [None]
  - DRUG HYPERSENSITIVITY [None]
  - HEART RATE INCREASED [None]
  - HYPERHIDROSIS [None]
  - HYPOTENSION [None]
  - RESPIRATORY RATE INCREASED [None]
  - UNRESPONSIVE TO STIMULI [None]
  - URINARY INCONTINENCE [None]
  - VOMITING [None]
